FAERS Safety Report 20006790 (Version 2)
Quarter: 2021Q4

REPORT INFORMATION
  Report Type: Report from Study
  Country: AU (occurrence: AU)
  Receive Date: 20211028
  Receipt Date: 20211231
  Transmission Date: 20220303
  Serious: Yes (Hospitalization)
  Sender: FDA-Public Use
  Company Number: AU-BIOGEN-2021BI01061523

PATIENT
  Age: 63 Year
  Sex: Male
  Weight: 121 kg

DRUGS (4)
  1. PLEGRIDY [Suspect]
     Active Substance: PEGINTERFERON BETA-1A
     Indication: Multiple sclerosis
     Route: 058
     Dates: start: 20200428, end: 20210801
  2. MAVENCLAD [Suspect]
     Active Substance: CLADRIBINE
     Indication: Product used for unknown indication
     Route: 065
     Dates: start: 20210816
  3. WARFARIN [Concomitant]
     Active Substance: WARFARIN
     Indication: Factor V Leiden mutation
     Route: 065
  4. Parastatin [Concomitant]
     Indication: Product used for unknown indication
     Route: 065

REACTIONS (1)
  - Bladder cancer [Not Recovered/Not Resolved]

NARRATIVE: CASE EVENT DATE: 20211008
